FAERS Safety Report 9860073 (Version 3)
Quarter: 2014Q1

REPORT INFORMATION
  Report Type: Report from Study
  Country: CA (occurrence: CA)
  Receive Date: 20140131
  Receipt Date: 20140213
  Transmission Date: 20141002
  Serious: Yes (Other)
  Sender: FDA-Public Use
  Company Number: CA-ROCHE-1135125

PATIENT
  Age: 56 Year
  Sex: Female
  Weight: 53 kg

DRUGS (19)
  1. ACTEMRA [Suspect]
     Indication: RHEUMATOID ARTHRITIS
     Route: 042
     Dates: start: 20110218
  2. ACTEMRA [Suspect]
     Route: 042
     Dates: start: 20131119
  3. VITAMIN B12 [Concomitant]
  4. VITAMIN C [Concomitant]
  5. VITAMIN E [Concomitant]
  6. BIOTIN [Concomitant]
  7. SELENIUM [Concomitant]
  8. TYLENOL [Concomitant]
  9. INOSITOL [Concomitant]
  10. MACROBID [Concomitant]
  11. PREDNISONE [Concomitant]
  12. TECTA [Concomitant]
  13. L-TYROSINE [Concomitant]
  14. 5-HTP [Concomitant]
  15. GLUCOSAMINE CHONDROITIN COMPLEX [Concomitant]
  16. STRESSCAPS [Concomitant]
  17. COENZYME Q-10 [Concomitant]
  18. BETA CAROTENE [Concomitant]
  19. OCUVITE PRESERVISION [Concomitant]

REACTIONS (5)
  - Psoriasis [Unknown]
  - Contusion [Unknown]
  - Oral herpes [Recovered/Resolved]
  - Hypotension [Unknown]
  - Blood cholesterol increased [Unknown]
